FAERS Safety Report 7256583 (Version 3)
Quarter: 2013Q2

REPORT INFORMATION
  Report Type: Report from Study
  Country: DE (occurrence: DE)
  Receive Date: 20100126
  Receipt Date: 20130626
  Transmission Date: 20140414
  Serious: Yes (Hospitalization)
  Sender: FDA-Public Use
  Company Number: DE-ROCHE-681018

PATIENT
  Age: 38 Year
  Sex: Male
  Weight: 64 kg

DRUGS (7)
  1. PEG-INTERFERON ALFA 2A [Suspect]
     Indication: CHRONIC HEPATITIS C
     Route: 058
     Dates: start: 20090715, end: 20100112
  2. PEG-INTERFERON ALFA 2A [Suspect]
     Route: 058
  3. RIBAVIRIN [Suspect]
     Indication: CHRONIC HEPATITIS C
     Route: 048
     Dates: start: 20090715, end: 20100112
  4. RIBAVIRIN [Suspect]
     Route: 048
  5. CYMBALTA [Concomitant]
     Indication: DEPRESSED MOOD
     Route: 048
  6. FENISTIL (GERMANY) [Concomitant]
     Indication: PRURITUS
     Route: 048
  7. DERMATOP [Concomitant]
     Indication: ECZEMA
     Route: 061

REACTIONS (4)
  - Syncope [Recovered/Resolved]
  - General physical health deterioration [Recovered/Resolved]
  - Pyrexia [Recovered/Resolved]
  - Chills [Recovered/Resolved]
